FAERS Safety Report 7170107-7 (Version None)
Quarter: 2010Q4

REPORT INFORMATION
  Report Type: 
  Country: None (occurrence: None)
  Receive Date: 20101217
  Receipt Date: 20101210
  Transmission Date: 20110411
  Serious: Yes (Life-Threatening, Hospitalization)
  Sender: FDA-Public Use
  Company Number: US-ROCHE-711460

PATIENT
  Sex: Male
  Weight: 83.5 kg

DRUGS (20)
  1. TOCILIZUMAB [Suspect]
     Indication: RHEUMATOID ARTHRITIS
     Dosage: DATE OF LAST DOSE PRIOR TO SAE: 11 MAY 2010, TEMPORARILY INTERRUPTED, DOSE FORM : VIAL
     Route: 042
     Dates: start: 20091124
  2. TOCILIZUMAB [Suspect]
     Route: 042
     Dates: start: 20100212
  3. TOCILIZUMAB [Suspect]
     Route: 042
     Dates: start: 20100311
  4. TOCILIZUMAB [Suspect]
     Route: 042
     Dates: start: 20100409
  5. TOCILIZUMAB [Suspect]
     Dosage: TEMPORARILY INTERRUPTED
     Route: 042
     Dates: start: 20100511, end: 20100622
  6. TOCILIZUMAB [Suspect]
     Route: 042
     Dates: start: 20100704
  7. METHOTREXATE [Concomitant]
     Route: 048
     Dates: start: 20100112
  8. METHOTREXATE [Concomitant]
     Route: 048
     Dates: start: 20100513
  9. ANTIHYPERTENSIVE NOS [Concomitant]
  10. PERCOCET [Concomitant]
  11. FINASTERIDE [Concomitant]
     Dosage: FREQUENCY: QD
     Dates: start: 20070129
  12. FOLIC ACID [Concomitant]
     Dosage: FREQUENCY: QD
     Dates: start: 20070129
  13. NITROGLYCERIN [Concomitant]
     Dosage: FREQUENCY: PRN
     Dates: start: 20100512
  14. ASPIRIN [Concomitant]
     Dates: start: 20100513
  15. PLAVIX [Concomitant]
     Dates: start: 20070517
  16. PROSCAR [Concomitant]
  17. LISINOPRIL [Concomitant]
     Dates: start: 20100129, end: 20100513
  18. LISINOPRIL [Concomitant]
     Dates: start: 20100513
  19. CRESTOR [Concomitant]
     Dates: start: 20100512
  20. TYLENOL (CAPLET) [Concomitant]
     Dates: start: 20100513

REACTIONS (2)
  - CELLULITIS STAPHYLOCOCCAL [None]
  - CORONARY ARTERY DISEASE [None]
